FAERS Safety Report 8590176 (Version 2)
Quarter: 2013Q2

REPORT INFORMATION
  Report Type: Spontaneous
  Country: US (occurrence: US)
  Receive Date: 20120601
  Receipt Date: 20130617
  Transmission Date: 20140414
  Serious: Yes (Hospitalization, Disabling)
  Sender: FDA-Public Use
  Company Number: US-ASTRAZENECA-2012SE34624

PATIENT
  Age: 592 Month
  Sex: Male
  Weight: 104.3 kg

DRUGS (8)
  1. NEXIUM [Suspect]
     Indication: GASTRIC DISORDER
     Route: 048
     Dates: start: 20060613, end: 20130415
  2. NEXIUM [Suspect]
     Indication: GASTRIC DISORDER
     Dosage: MORNING
     Route: 048
     Dates: start: 201101
  3. PRILOSEC OTC [Suspect]
     Route: 048
  4. TUMS [Concomitant]
  5. ALKA SELZER [Concomitant]
  6. PEPTO BISMOL [Concomitant]
  7. ROLAIDS [Concomitant]
  8. MYLANTA OTC [Concomitant]
     Dates: start: 2004, end: 2013

REACTIONS (8)
  - Ischaemic limb pain [Unknown]
  - Peripheral arterial occlusive disease [Unknown]
  - Coronary artery disease [Unknown]
  - Bone pain [Unknown]
  - Vitamin D deficiency [Unknown]
  - Multiple fractures [Unknown]
  - Osteoporosis [Unknown]
  - Osteomyelitis [Unknown]
